FAERS Safety Report 20785635 (Version 1)
Quarter: 2022Q2

REPORT INFORMATION
  Report Type: Spontaneous
  Country: US (occurrence: None)
  Receive Date: 20220504
  Receipt Date: 20220504
  Transmission Date: 20220721
  Serious: No
  Sender: FDA-Public Use
  Company Number: US-ROCHE-2806830

PATIENT
  Age: 75 Year
  Sex: Male

DRUGS (5)
  1. OCREVUS [Suspect]
     Active Substance: OCRELIZUMAB
     Indication: Multiple sclerosis
     Route: 065
     Dates: start: 2016
  2. TERIFLUNOMIDE [Suspect]
     Active Substance: TERIFLUNOMIDE
     Indication: Multiple sclerosis
     Route: 048
     Dates: start: 20160722, end: 20160908
  3. TERIFLUNOMIDE [Suspect]
     Active Substance: TERIFLUNOMIDE
     Route: 048
     Dates: end: 201710
  4. TERIFLUNOMIDE [Suspect]
     Active Substance: TERIFLUNOMIDE
     Route: 048
     Dates: end: 201710
  5. COVID-19 VACCINE [Concomitant]
     Dates: start: 20210316

REACTIONS (4)
  - Alopecia [Not Recovered/Not Resolved]
  - Hypoacusis [Unknown]
  - Pain [Unknown]
  - Logorrhoea [Unknown]

NARRATIVE: CASE EVENT DATE: 20160801
